FAERS Safety Report 4577239-8 (Version None)
Quarter: 2005Q1

REPORT INFORMATION
  Report Type: 
  Country: None (occurrence: None)
  Receive Date: 20050209
  Receipt Date: 20050126
  Transmission Date: 20050727
  Serious: Yes (Death)
  Sender: FDA-Public Use
  Company Number: 2004AL000922

PATIENT
  Age: 53 Year
  Sex: Female

DRUGS (4)
  1. ACETAMINOPHEN [Suspect]
     Dosage: PO
     Route: 048
  2. ACETAMINOPHEN [Suspect]
     Dosage: PO
     Route: 048
  3. ASPIRIN [Suspect]
     Dosage: PO
     Route: 048
  4. AMPHETAMINE [Suspect]
     Dosage: PO
     Route: 048

REACTIONS (13)
  - COMPLETED SUICIDE [None]
  - CONFUSIONAL STATE [None]
  - DRUG LEVEL ABOVE THERAPEUTIC [None]
  - DRUG SCREEN POSITIVE [None]
  - DYSPNOEA [None]
  - HYPERGLYCAEMIA [None]
  - HYPOAESTHESIA [None]
  - MENTAL STATUS CHANGES [None]
  - METABOLIC ACIDOSIS [None]
  - PARAESTHESIA [None]
  - PULMONARY CONGESTION [None]
  - RESPIRATORY ALKALOSIS [None]
  - TACHYPNOEA [None]
